FAERS Safety Report 8713088 (Version 2)
Quarter: 2012Q4

REPORT INFORMATION
  Report Type: 
  Country: US (occurrence: US)
  Receive Date: 20120808
  Receipt Date: 20120828
  Transmission Date: 20130627
  Serious: Yes (Death)
  Sender: FDA-Public Use
  Company Number: US-PFIZER INC-2012191882

PATIENT
  Age: 65 Year
  Sex: Female

DRUGS (7)
  1. XALKORI [Suspect]
     Indication: NEOPLASM MALIGNANT
     Dosage: 250 mg, 2x/day, Take 1 capsule by mouth twice a day
     Route: 048
  2. PROTONIX [Concomitant]
     Dosage: 20 mg, UNK
  3. DOCUSATE SODIUM [Concomitant]
     Dosage: 100 mg, UNK
  4. WARFARIN [Concomitant]
     Dosage: 1 mg, UNK
  5. ATORVASTATIN [Concomitant]
     Dosage: 40 mg, UNK
  6. SUDAFED SINUS [Concomitant]
  7. ALBUTEROL [Concomitant]
     Dosage: 90 ug, UNK

REACTIONS (2)
  - Disease progression [Fatal]
  - Neoplasm malignant [Fatal]
